FAERS Safety Report 24963836 (Version 3)
Quarter: 2025Q1

REPORT INFORMATION
  Report Type: Spontaneous
  Country: JP (occurrence: JP)
  Receive Date: 20250213
  Receipt Date: 20250331
  Transmission Date: 20250409
  Serious: Yes (Hospitalization)
  Sender: GLAXOSMITHKLINE
  Company Number: JP-GSK-JP2025016782

PATIENT

DRUGS (1)
  1. BENLYSTA [Suspect]
     Active Substance: BELIMUMAB
     Indication: Systemic lupus erythematosus
     Dosage: UNK, WE, 1 UNIT OF AI ON EVERY MONDAY

REACTIONS (4)
  - Lumbar spinal stenosis [Unknown]
  - Back pain [Unknown]
  - Device failure [Unknown]
  - Product complaint [Unknown]

NARRATIVE: CASE EVENT DATE: 20250210
